FAERS Safety Report 10928312 (Version 1)
Quarter: 2015Q1

REPORT INFORMATION
  Report Type: Spontaneous
  Country: US (occurrence: None)
  Receive Date: 20150317
  Receipt Date: 20150317
  Transmission Date: 20150721
  Serious: Yes (Other)
  Sender: FDA-Public Use
  Company Number: None

PATIENT
  Age: 72 Year
  Sex: Male
  Weight: 62.14 kg

DRUGS (2)
  1. VARDENAFIL [Suspect]
     Active Substance: VARDENAFIL
     Indication: ERECTILE DYSFUNCTION
     Dosage: 1 PILL ONCE DAILY TAKEN BY MOUTH
     Route: 048
     Dates: start: 20150315, end: 20150315
  2. LORAZEPAM. [Concomitant]
     Active Substance: LORAZEPAM

REACTIONS (1)
  - Tinnitus [None]

NARRATIVE: CASE EVENT DATE: 20150315
